FAERS Safety Report 7386445-9 (Version None)
Quarter: 2011Q1

REPORT INFORMATION
  Report Type: 
  Country: None (occurrence: None)
  Receive Date: 20110331
  Receipt Date: 20110321
  Transmission Date: 20110831
  Serious: Yes (Disabling, Other)
  Sender: FDA-Public Use
  Company Number: FR-JNJFOC-20110202713

PATIENT
  Age: 59 Year
  Sex: Male
  Weight: 94 kg

DRUGS (3)
  1. ISENTRESS [Suspect]
     Indication: HIV INFECTION
     Route: 048
     Dates: start: 20070201, end: 20100701
  2. TRUVADA [Suspect]
     Indication: HIV INFECTION
     Dates: start: 20070201
  3. PREZISTA [Suspect]
     Indication: HIV INFECTION
     Dates: start: 20070201

REACTIONS (4)
  - MYOSITIS [None]
  - OSTEOARTHRITIS [None]
  - ARTHRALGIA [None]
  - ARTHROPATHY [None]
